FAERS Safety Report 7489420-9 (Version None)
Quarter: 2011Q2

REPORT INFORMATION
  Report Type: 
  Country: None (occurrence: None)
  Receive Date: 20110518
  Receipt Date: 20110512
  Transmission Date: 20111010
  Serious: Yes (Death)
  Sender: FDA-Public Use
  Company Number: GB-MERCK-1105GBR00042

PATIENT
  Age: 76 Year
  Sex: Male
  Weight: 80 kg

DRUGS (12)
  1. CLOPIDOGREL [Suspect]
     Indication: ACUTE MYOCARDIAL INFARCTION
     Route: 048
     Dates: start: 20110303, end: 20110308
  2. FUROSEMIDE [Suspect]
     Indication: LEFT VENTRICULAR FAILURE
     Route: 048
     Dates: start: 20110304, end: 20110307
  3. ALLOPURINOL [Concomitant]
     Route: 065
  4. FUROSEMIDE [Suspect]
     Indication: ACUTE MYOCARDIAL INFARCTION
     Route: 048
     Dates: start: 20110304, end: 20110307
  5. ASPIRIN [Concomitant]
     Route: 065
  6. BISOPROLOL [Concomitant]
     Route: 065
  7. RAMIPRIL [Concomitant]
     Route: 065
  8. ZOCOR [Suspect]
     Indication: ACUTE MYOCARDIAL INFARCTION
     Route: 048
     Dates: start: 20110302, end: 20110308
  9. THIAMINE [Concomitant]
     Route: 065
  10. LEVOTHYROXINE SODIUM [Concomitant]
     Route: 065
  11. VITAMIN B (UNSPECIFIED) [Concomitant]
     Route: 065
  12. DIAZEPAM [Concomitant]
     Route: 065

REACTIONS (3)
  - LIVER INJURY [None]
  - LETHARGY [None]
  - ABDOMINAL PAIN UPPER [None]
